FAERS Safety Report 22984722 (Version 2)
Quarter: 2023Q4

REPORT INFORMATION
  Report Type: Report from Study
  Country: US (occurrence: US)
  Receive Date: 20230926
  Receipt Date: 20231012
  Transmission Date: 20240110
  Serious: Yes (Hospitalization)
  Sender: FDA-Public Use
  Company Number: US-DSJP-DSU-2023-139216

PATIENT
  Sex: Female

DRUGS (1)
  1. ENHERTU [Suspect]
     Active Substance: FAM-TRASTUZUMAB DERUXTECAN-NXKI
     Indication: HER2 negative breast cancer
     Dosage: UNK
     Route: 065
     Dates: start: 20230919

REACTIONS (6)
  - Dyspnoea [Unknown]
  - Decreased appetite [Recovered/Resolved]
  - Psychomotor hyperactivity [Unknown]
  - Skin discolouration [Unknown]
  - Alopecia [Recovering/Resolving]
  - Lymphadenopathy [Unknown]

NARRATIVE: CASE EVENT DATE: 20230101
